FAERS Safety Report 5247799-2 (Version None)
Quarter: 2007Q1

REPORT INFORMATION
  Report Type: 
  Country: None (occurrence: None)
  Receive Date: 20070227
  Receipt Date: 20070227
  Transmission Date: 20070707
  Serious: Yes (Hospitalization)
  Sender: FDA-Public Use
  Company Number: None

PATIENT
  Age: 41 Year
  Sex: Male
  Weight: 93.3503 kg

DRUGS (2)
  1. LEUKINE [Suspect]
     Indication: CHEMOTHERAPY
     Dosage: 500 MCG/ML DAILY FOR 7 DAYS PO
     Route: 048
     Dates: start: 20070102, end: 20070105
  2. LEUKINE [Suspect]
     Indication: LABORATORY TEST ABNORMAL
     Dosage: 500 MCG/ML DAILY FOR 7 DAYS PO
     Route: 048
     Dates: start: 20070102, end: 20070105

REACTIONS (3)
  - BONE PAIN [None]
  - INFLUENZA LIKE ILLNESS [None]
  - INSOMNIA [None]
